FAERS Safety Report 11855136 (Version 3)
Quarter: 2016Q1

REPORT INFORMATION
  Report Type: Report from Study
  Country: SG (occurrence: SG)
  Receive Date: 20151221
  Receipt Date: 20160321
  Transmission Date: 20160526
  Serious: Yes (Death, Hospitalization)
  Sender: FDA-Public Use
  Company Number: SG-ROCHE-1521584

PATIENT
  Age: 66 Year
  Sex: Male
  Weight: 65.6 kg

DRUGS (15)
  1. ATEZOLIZUMAB [Suspect]
     Active Substance: ATEZOLIZUMAB
     Indication: NON-SMALL CELL LUNG CANCER
     Dosage: LAST DOSE (800 MG) PRIOR TO SAE WAS ON 30/DEC/2014 AT START TIME 13:50. ?DATE OF MOST RECENT DOSE PR
     Route: 042
     Dates: start: 20141118
  2. HYDROCORTISONE. [Concomitant]
     Active Substance: HYDROCORTISONE
     Indication: RASH
     Dosage: DOSE REPORTED AS 2 OTHER.
     Route: 065
     Dates: start: 20141229, end: 20150104
  3. DEXAMETHASONE. [Concomitant]
     Active Substance: DEXAMETHASONE
     Indication: RASH
     Route: 065
     Dates: start: 20141229, end: 20141229
  4. LEVOFLOXACIN. [Concomitant]
     Active Substance: LEVOFLOXACIN
     Indication: LOWER RESPIRATORY TRACT INFECTION
     Route: 065
     Dates: start: 20141125, end: 20141207
  5. SUNITON [Concomitant]
     Indication: MYALGIA
     Dosage: 450/35 MG.
     Route: 065
     Dates: start: 20141125, end: 20141201
  6. DOXYCYCLINE. [Concomitant]
     Active Substance: DOXYCYCLINE
     Indication: RASH
     Route: 065
     Dates: start: 20141229, end: 20150104
  7. COBIMETINIB [Suspect]
     Active Substance: COBIMETINIB
     Indication: NON-SMALL CELL LUNG CANCER
     Dosage: MOST RECENT DOSE PRIOR TO EVENT ONSET WAS 60 MG ON 11/JAN/2015 AT START TIME 12:00.?DATE OF MOST REC
     Route: 048
     Dates: start: 20141201
  8. MEGESTROL ACETATE. [Concomitant]
     Active Substance: MEGESTROL ACETATE
     Indication: HORMONE THERAPY
     Route: 065
     Dates: start: 20141208, end: 20141214
  9. PARACETAMOL [Concomitant]
     Active Substance: ACETAMINOPHEN
     Indication: PYREXIA
  10. ATENOLOL. [Concomitant]
     Active Substance: ATENOLOL
     Indication: HYPERTENSION
     Route: 065
  11. VASELINE PURE [Concomitant]
     Active Substance: PETROLATUM
     Indication: LIP DRY
     Dosage: DOSE REPORTED AS 1 OTHER.
     Route: 065
     Dates: start: 20141128
  12. LEVOFLOXACIN. [Concomitant]
     Active Substance: LEVOFLOXACIN
     Route: 065
     Dates: start: 20141230, end: 20150105
  13. PROCODIN [Concomitant]
     Indication: COUGH
     Route: 065
     Dates: start: 20141115, end: 20141215
  14. FLUIMUCIL [Concomitant]
     Active Substance: ACETYLCYSTEINE
     Indication: LOWER RESPIRATORY TRACT INFECTION
     Route: 065
     Dates: start: 20141128, end: 20141205
  15. PARACETAMOL [Concomitant]
     Active Substance: ACETAMINOPHEN
     Indication: PAIN
     Route: 065
     Dates: start: 20141112, end: 20141207

REACTIONS (2)
  - Pneumonitis [Recovered/Resolved]
  - Dyspnoea [Fatal]

NARRATIVE: CASE EVENT DATE: 20141229
